FAERS Safety Report 4462044-3 (Version None)
Quarter: 2004Q3

REPORT INFORMATION
  Report Type: 
  Country: None (occurrence: None)
  Receive Date: 20040924
  Receipt Date: 20040909
  Transmission Date: 20050211
  Serious: Yes (Congenital Anomaly)
  Sender: FDA-Public Use
  Company Number: 2004S1000062

PATIENT
  Age: 25 Year
  Sex: Female

DRUGS (4)
  1. ACITRETIN (ACITRETIN) [Suspect]
     Indication: PSORIASIS
     Dates: end: 20020101
  2. DERMOVAL (CLOBETASOL PROPIONATE) [Concomitant]
  3. BETNEVAL (BETAMETASONE VALERATE) [Concomitant]
  4. TRIDESONIDE (DESONIDE) [Concomitant]

REACTIONS (4)
  - ABORTION INDUCED [None]
  - COMPLICATIONS OF MATERNAL EXPOSURE TO THERAPEUTIC DRUGS [None]
  - PREGNANCY [None]
  - ULTRASOUND ANTENATAL SCREEN ABNORMAL [None]
